FAERS Safety Report 11038225 (Version 4)
Quarter: 2015Q3

REPORT INFORMATION
  Report Type: Spontaneous
  Country: BR (occurrence: BR)
  Receive Date: 20150416
  Receipt Date: 20150903
  Transmission Date: 20151125
  Serious: Yes (Hospitalization)
  Sender: FDA-Public Use
  Company Number: BR-PFIZER INC-2014333468

PATIENT
  Age: 66 Year
  Sex: Male
  Weight: 68 kg

DRUGS (8)
  1. SUTENT [Suspect]
     Active Substance: SUNITINIB MALATE
     Dosage: UNK
     Route: 048
     Dates: end: 201507
  2. AMLODIPINE BESILATE [Concomitant]
     Active Substance: AMLODIPINE BESYLATE
     Dosage: UNK, 2X/DAY (MORNING AND AT NIGHT)
     Dates: start: 2013
  3. LOSARTAN POTASSIUM. [Concomitant]
     Active Substance: LOSARTAN POTASSIUM
     Dosage: UNK, 2X/DAY (MORNING AND AT NIGHT)
     Dates: start: 2013
  4. BROMOPRIDE [Concomitant]
     Active Substance: BROMOPRIDE
     Dosage: 10 MG, 3X/DAY (EVERY 8 HOURS)
     Dates: start: 20150115
  5. SUTENT [Suspect]
     Active Substance: SUNITINIB MALATE
     Dosage: 50 MG, ONCE PER DAY, CYCLE 4 PER 2
     Route: 048
     Dates: start: 20150211, end: 20150330
  6. SUTENT [Suspect]
     Active Substance: SUNITINIB MALATE
     Indication: METASTATIC RENAL CELL CARCINOMA
     Dosage: 50 MG DAILY, CYCLE 2 PER 2
     Route: 048
     Dates: start: 20140916
  7. ONCICREM A [Concomitant]
     Dosage: UNK
  8. CENTRUM A TO ZINC [Concomitant]
     Dosage: UNK
     Dates: end: 20150330

REACTIONS (17)
  - Tremor [Recovered/Resolved]
  - Skin wound [Recovered/Resolved]
  - Genital erythema [Not Recovered/Not Resolved]
  - Genital swelling [Recovered/Resolved]
  - Skin exfoliation [Recovered/Resolved]
  - Hypotension [Not Recovered/Not Resolved]
  - Hyperkeratosis [Recovered/Resolved]
  - Feeling cold [Recovered/Resolved]
  - Heart rate increased [Recovered/Resolved]
  - Swelling [Recovered/Resolved]
  - Headache [Not Recovered/Not Resolved]
  - Generalised erythema [Not Recovered/Not Resolved]
  - Peripheral swelling [Recovered/Resolved]
  - Blood pressure increased [Recovered/Resolved]
  - Pain in extremity [Recovered/Resolved]
  - Oral pain [Recovered/Resolved]
  - Blister [Not Recovered/Not Resolved]

NARRATIVE: CASE EVENT DATE: 201411
